FAERS Safety Report 7136169-8 (Version None)
Quarter: 2010Q4

REPORT INFORMATION
  Report Type: 
  Country: None (occurrence: None)
  Receive Date: 20101206
  Receipt Date: 20070525
  Transmission Date: 20110411
  Serious: Yes (Death)
  Sender: FDA-Public Use
  Company Number: US-ACTELION-A-US2007-15913

PATIENT

DRUGS (14)
  1. ILOPROST INHALATION SOLUTION 5UG US [Suspect]
     Indication: PULMONARY ARTERIAL HYPERTENSION
     Dosage: 5 UG, 6-9 X DAY
     Route: 055
     Dates: start: 20070416, end: 20070520
  2. TRACLEER [Concomitant]
     Indication: PULMONARY ARTERIAL HYPERTENSION
     Dates: end: 20070520
  3. VIAGRA [Concomitant]
  4. COREG [Concomitant]
  5. DIOVAN [Concomitant]
  6. OXYGEN [Concomitant]
  7. GLYBURIDE [Concomitant]
  8. HYDROCHLOROTHIAZIDE [Concomitant]
  9. FEXOFENADINE HCL [Concomitant]
  10. VYTORIN [Concomitant]
  11. SPIRIVA [Concomitant]
  12. LAMISIL [Concomitant]
  13. CITALOPRAM [Concomitant]
  14. ASPIRIN [Concomitant]

REACTIONS (1)
  - DEATH [None]
